FAERS Safety Report 21393916 (Version 1)
Quarter: 2022Q3

REPORT INFORMATION
  Report Type: Spontaneous
  Country: CA (occurrence: CA)
  Receive Date: 20220930
  Receipt Date: 20220930
  Transmission Date: 20221027
  Serious: Yes (Hospitalization, Other)
  Sender: FDA-Public Use
  Company Number: CA-AUROBINDO-AUR-APL-2022-039627

PATIENT
  Age: 71 Year
  Sex: Female

DRUGS (2)
  1. ROSUVASTATIN [Suspect]
     Active Substance: ROSUVASTATIN
     Indication: Product used for unknown indication
     Dosage: UNK
     Route: 048
  2. OCALIVA [Suspect]
     Active Substance: OBETICHOLIC ACID
     Indication: Product used for unknown indication
     Dosage: 5.0 MILLIGRAM, ONCE A DAY
     Route: 048

REACTIONS (8)
  - Rhabdomyolysis [Unknown]
  - Asthenia [Unknown]
  - Blood creatinine increased [Unknown]
  - Drug interaction [Unknown]
  - Peripheral coldness [Unknown]
  - Pruritus [Unknown]
  - Renal impairment [Unknown]
  - Sleep disorder [Unknown]
